FAERS Safety Report 11965233 (Version 2)
Quarter: 2016Q1

REPORT INFORMATION
  Report Type: Report from Study
  Country: CA (occurrence: CA)
  Receive Date: 20160127
  Receipt Date: 20160302
  Transmission Date: 20160526
  Serious: Yes (Other)
  Sender: FDA-Public Use
  Company Number: PHHY2015CA062050

PATIENT
  Age: 74 Year
  Sex: Female

DRUGS (2)
  1. XOLAIR [Suspect]
     Active Substance: OMALIZUMAB
     Indication: ASTHMA
     Dosage: 150 MG, EVERY FOUR WEEKS
     Route: 058
     Dates: start: 20150519
  2. SEEBRI BREEZHALER [Suspect]
     Active Substance: GLYCOPYRROLATE
     Indication: ASTHMA
     Dosage: UNK, QD
     Route: 055
     Dates: start: 2014

REACTIONS (8)
  - Dizziness [Unknown]
  - Arthralgia [Recovered/Resolved]
  - Dyspnoea [Recovering/Resolving]
  - Arthritis [Unknown]
  - Chest pain [Unknown]
  - Restlessness [Recovering/Resolving]
  - Angina pectoris [Unknown]
  - Product use issue [Unknown]

NARRATIVE: CASE EVENT DATE: 20150519
